FAERS Safety Report 7536827-7 (Version None)
Quarter: 2011Q2

REPORT INFORMATION
  Report Type: 
  Country: None (occurrence: None)
  Receive Date: 20110609
  Receipt Date: 20110526
  Transmission Date: 20111010
  Serious: Yes (Death)
  Sender: FDA-Public Use
  Company Number: ID-ROCHE-779855

PATIENT

DRUGS (1)
  1. TOCILIZUMAB [Suspect]
     Indication: JUVENILE ARTHRITIS
     Route: 042

REACTIONS (1)
  - HISTIOCYTOSIS HAEMATOPHAGIC [None]
